FAERS Safety Report 8911789 (Version 1)
Quarter: 2012Q4

REPORT INFORMATION
  Report Type: Spontaneous
  Country: US (occurrence: None)
  Receive Date: 20121113
  Receipt Date: 20121113
  Transmission Date: 20130627
  Serious: Yes (Other)
  Sender: FDA-Public Use
  Company Number: 1474021

PATIENT
  Age: 19 Year
  Sex: Female

DRUGS (5)
  1. LIDOCAINE HYDROCHLORIDE [Suspect]
     Indication: BLEEDING
     Dates: start: 20120830, end: 20120830
  2. FENTANYL CITRATE [Suspect]
     Dates: start: 20120830, end: 20120830
  3. MIDAZOLAM [Suspect]
     Dates: start: 20120830, end: 20120830
  4. VASOPRESSIN [Suspect]
     Indication: BLEEDING
     Dates: start: 20120830, end: 20120830
  5. SODIUM BICARBONATE [Suspect]
     Indication: BLEEDING
     Dates: start: 20120830, end: 20120830

REACTIONS (2)
  - Unresponsive to stimuli [None]
  - Off label use [None]
